FAERS Safety Report 14669015 (Version 2)
Quarter: 2018Q2

REPORT INFORMATION
  Report Type: Spontaneous
  Country: US (occurrence: US)
  Receive Date: 20180322
  Receipt Date: 20180618
  Transmission Date: 20180711
  Serious: Yes (Death, Life-Threatening, Hospitalization)
  Sender: FDA-Public Use
  Company Number: US-JNJFOC-20180313395

PATIENT
  Age: 49 Year
  Sex: Male

DRUGS (3)
  1. XARELTO [Suspect]
     Active Substance: RIVAROXABAN
     Indication: ATRIAL FIBRILLATION
     Dosage: WITH DINNER
     Route: 048
     Dates: start: 201408, end: 201603
  2. XARELTO [Suspect]
     Active Substance: RIVAROXABAN
     Indication: CEREBROVASCULAR ACCIDENT PROPHYLAXIS
     Dosage: WITH DINNER
     Route: 048
     Dates: start: 201408, end: 201603
  3. XARELTO [Suspect]
     Active Substance: RIVAROXABAN
     Indication: THROMBOSIS PROPHYLAXIS
     Dosage: WITH DINNER
     Route: 048
     Dates: start: 201408, end: 201603

REACTIONS (7)
  - Subarachnoid haemorrhage [Unknown]
  - Death [Fatal]
  - Head injury [Unknown]
  - Subdural haematoma [Unknown]
  - Epistaxis [Unknown]
  - Fall [Unknown]
  - Eye contusion [Unknown]

NARRATIVE: CASE EVENT DATE: 20160308
